FAERS Safety Report 8618736-5 (Version None)
Quarter: 2012Q3

REPORT INFORMATION
  Report Type: 
  Country: None (occurrence: None)
  Receive Date: 20120815
  Receipt Date: 20120815
  Transmission Date: 20120928
  Serious: Yes (Hospitalization)
  Sender: FDA-Public Use
  Company Number: None

PATIENT
  Sex: Male

DRUGS (1)
  1. HUMIRA [Suspect]
     Indication: PSORIASIS
     Dosage: 40 MG EVERY 2 WEEKS SUB Q
     Route: 058
     Dates: start: 20120423, end: 20120523

REACTIONS (3)
  - LUPUS-LIKE SYNDROME [None]
  - BACK PAIN [None]
  - CHEST PAIN [None]
